FAERS Safety Report 7773905-1 (Version None)
Quarter: 2011Q3

REPORT INFORMATION
  Report Type: 
  Country: None (occurrence: None)
  Receive Date: 20110923
  Receipt Date: 20110920
  Transmission Date: 20111222
  Serious: Yes (Death)
  Sender: FDA-Public Use
  Company Number: CN-PFIZER INC-2011222433

PATIENT

DRUGS (1)
  1. ZYVOX [Suspect]
     Indication: BACTERIAL INFECTION
     Dosage: UNK
     Dates: start: 20110101, end: 20110101

REACTIONS (2)
  - CEREBRAL HAEMORRHAGE [None]
  - ABDOMINAL PAIN [None]
